FAERS Safety Report 21632814 (Version 3)
Quarter: 2024Q3

REPORT INFORMATION
  Report Type: Spontaneous
  Country: US (occurrence: US)
  Receive Date: 20221123
  Receipt Date: 20240930
  Transmission Date: 20241017
  Serious: Yes (Death, Hospitalization, Disabling, Other)
  Sender: SANOFI AVENTIS
  Company Number: US-SANOFI-01365596

PATIENT
  Age: 56 Year
  Sex: Female

DRUGS (1)
  1. LUMIZYME [Suspect]
     Active Substance: ALGLUCOSIDASE ALFA
     Indication: Glycogen storage disease type II
     Dosage: UNK
     Dates: end: 202404

REACTIONS (8)
  - Cardiac arrest [Fatal]
  - Bedridden [Unknown]
  - Respiratory disorder [Unknown]
  - Carbon dioxide increased [Unknown]
  - Disease progression [Unknown]
  - Drug ineffective [Unknown]
  - Product prescribing issue [Unknown]
  - Incorrect drug administration rate [Unknown]

NARRATIVE: CASE EVENT DATE: 20240401
